FAERS Safety Report 6994110-2 (Version None)
Quarter: 2010Q3

REPORT INFORMATION
  Report Type: 
  Country: None (occurrence: None)
  Receive Date: 20100917
  Receipt Date: 20091105
  Transmission Date: 20110219
  Serious: Yes (Other)
  Sender: FDA-Public Use
  Company Number: US-ASTRAZENECA-2009SE24939

PATIENT
  Age: 45 Year
  Sex: Female
  Weight: 90.7 kg

DRUGS (17)
  1. SEROQUEL [Suspect]
     Indication: DEPRESSION
     Route: 048
     Dates: start: 20080901
  2. SEROQUEL [Suspect]
     Dosage: 100 MG MORNING AND 500 MG AT NIGHT
     Route: 048
  3. ABILIFY [Suspect]
     Indication: DEPRESSION
     Dates: end: 20080601
  4. CHANTIX [Suspect]
     Indication: EX-TOBACCO USER
     Route: 048
     Dates: start: 20080501, end: 20080101
  5. PERPHENAZINE [Suspect]
     Indication: DEPRESSION
     Dates: start: 20080601, end: 20090801
  6. FUROSEMIDE [Concomitant]
  7. FEXOFENADINE HCL [Concomitant]
  8. OXYBUTYNIN [Concomitant]
  9. NAPROXEN [Concomitant]
  10. ALBUTEROL [Concomitant]
  11. NEXIUM [Concomitant]
  12. CARBAMAZEPINE [Concomitant]
  13. LISINOPRIL [Concomitant]
  14. VYTORIN [Concomitant]
  15. SINGULAIR [Concomitant]
  16. ADVAIR DISKUS 100/50 [Concomitant]
  17. ESTRADIOL CYPIONATE [Concomitant]

REACTIONS (2)
  - TYPE 2 DIABETES MELLITUS [None]
  - WEIGHT INCREASED [None]
